FAERS Safety Report 5097655-8 (Version None)
Quarter: 2006Q3

REPORT INFORMATION
  Report Type: 
  Country: None (occurrence: None)
  Receive Date: 20060901
  Receipt Date: 20060815
  Transmission Date: 20061208
  Serious: Yes (Hospitalization)
  Sender: FDA-Public Use
  Company Number: US200606003608

PATIENT
  Sex: Female
  Weight: 108.8 kg

DRUGS (5)
  1. ZYPREXA [Suspect]
     Dates: start: 20000101, end: 20010101
  2. GEODON [Concomitant]
  3. DEPAKOTE [Concomitant]
  4. EFFEXOR [Concomitant]
  5. ORAL CONTRACEPTIVE NOS [Concomitant]

REACTIONS (6)
  - BLOOD CHOLESTEROL ABNORMAL [None]
  - BLOOD TRIGLYCERIDES INCREASED [None]
  - CHOLELITHIASIS [None]
  - DIABETES MELLITUS [None]
  - GALLBLADDER DISORDER [None]
  - OBESITY [None]
